FAERS Safety Report 7770273-6 (Version None)
Quarter: 2011Q3

REPORT INFORMATION
  Report Type: 
  Country: None (occurrence: None)
  Receive Date: 20110922
  Receipt Date: 20110203
  Transmission Date: 20111222
  Serious: No
  Sender: FDA-Public Use
  Company Number: US-ASTRAZENECA-2011SE06379

PATIENT
  Age: 672 Month
  Sex: Female

DRUGS (4)
  1. LEXAPRO [Concomitant]
     Dosage: 10 MG-20 MG
     Dates: start: 20050607
  2. ABILIFY [Concomitant]
     Dates: start: 20070101
  3. SEROQUEL [Suspect]
     Dosage: 100 MG -300 MG
     Route: 048
     Dates: start: 20050607, end: 20070522
  4. TRAZODONE HYDROCHLORIDE [Concomitant]
     Dates: start: 20080101

REACTIONS (5)
  - TYPE 1 DIABETES MELLITUS [None]
  - TYPE 2 DIABETES MELLITUS [None]
  - INSOMNIA [None]
  - MAJOR DEPRESSION [None]
  - POST-TRAUMATIC STRESS DISORDER [None]
